FAERS Safety Report 11227547 (Version 1)
Quarter: 2015Q2

REPORT INFORMATION
  Report Type: Spontaneous
  Country: US (occurrence: US)
  Receive Date: 20150630
  Receipt Date: 20150630
  Transmission Date: 20150821
  Serious: No
  Sender: FDA-Public Use
  Company Number: US-BEH-2014042709

PATIENT
  Sex: Female

DRUGS (1)
  1. HUMATE-P [Suspect]
     Active Substance: HUMAN COAGULATION FACTOR VIII/VON WILLEBRAND FACTOR COMPLEX
     Dosage: BEEN GIVEN HUMATE P FOR YEARS

REACTIONS (4)
  - Chest discomfort [Unknown]
  - Incision site haemorrhage [Unknown]
  - Infusion site haemorrhage [Unknown]
  - Epistaxis [Unknown]
